FAERS Safety Report 6337583-0 (Version None)
Quarter: 2009Q3

REPORT INFORMATION
  Report Type: 
  Country: None (occurrence: None)
  Receive Date: 20090902
  Receipt Date: 20090824
  Transmission Date: 20100115
  Serious: Yes (Other)
  Sender: FDA-Public Use
  Company Number: US-ASTRAZENECA-2009SE05355

PATIENT
  Age: 68 Year
  Sex: Female
  Weight: 74.8 kg

DRUGS (3)
  1. ARIMIDEX [Suspect]
     Indication: BREAST CANCER
     Route: 048
     Dates: start: 20061101
  2. ARIMIDEX [Suspect]
     Route: 048
     Dates: start: 20090701
  3. TOMAXIFEN [Suspect]
     Route: 048

REACTIONS (4)
  - ARTHRALGIA [None]
  - BONE DENSITY DECREASED [None]
  - CATARACT [None]
  - RETINOSCHISIS [None]
